FAERS Safety Report 21811428 (Version 13)
Quarter: 2023Q4

REPORT INFORMATION
  Report Type: Spontaneous
  Country: CA (occurrence: CA)
  Receive Date: 20230103
  Receipt Date: 20231221
  Transmission Date: 20240109
  Serious: Yes (Hospitalization, Other)
  Sender: FDA-Public Use
  Company Number: CA-PFIZER INC-202201401044

PATIENT
  Age: 72 Year
  Sex: Female

DRUGS (5)
  1. XELJANZ [Suspect]
     Active Substance: TOFACITINIB CITRATE
     Indication: Colitis ulcerative
     Dosage: 10 MG, 2X/DAY
     Route: 048
     Dates: start: 2022, end: 20221226
  2. XELJANZ [Suspect]
     Active Substance: TOFACITINIB CITRATE
     Dosage: 10 MG, 2X/DAY (FOR 8 WEEKS, THEN 5MG TWICE DAILY FOR 44 WEEKS)
     Route: 048
     Dates: start: 20221212
  3. XELJANZ [Suspect]
     Active Substance: TOFACITINIB CITRATE
     Dosage: 10 MG, 2X/DAY (INDUCTION: 10MG BID FOR 8 WEEKS;MAINTENANCE 5MG BID)
     Route: 048
     Dates: start: 20221212
  4. XELJANZ [Suspect]
     Active Substance: TOFACITINIB CITRATE
     Dosage: 10 MG, 2X/DAY
     Route: 048
  5. ENTOCORT [Concomitant]
     Active Substance: BUDESONIDE
     Dosage: UNK

REACTIONS (22)
  - Fall [Unknown]
  - Wrist fracture [Not Recovered/Not Resolved]
  - Red blood cell count decreased [Recovering/Resolving]
  - Drug ineffective [Unknown]
  - Respiratory tract infection viral [Not Recovered/Not Resolved]
  - Respiratory syncytial virus infection [Not Recovered/Not Resolved]
  - Vomiting [Recovering/Resolving]
  - Diarrhoea [Not Recovered/Not Resolved]
  - Dyspepsia [Not Recovered/Not Resolved]
  - Eructation [Not Recovered/Not Resolved]
  - Headache [Not Recovered/Not Resolved]
  - Condition aggravated [Not Recovered/Not Resolved]
  - Stress [Recovering/Resolving]
  - Anxiety [Recovering/Resolving]
  - Gastrooesophageal reflux disease [Recovered/Resolved]
  - Flatulence [Unknown]
  - Weight increased [Unknown]
  - Illness [Unknown]
  - Malaise [Recovering/Resolving]
  - Palpitations [Recovering/Resolving]
  - Asthenia [Recovering/Resolving]
  - Dysphagia [Recovering/Resolving]

NARRATIVE: CASE EVENT DATE: 20221219
